FAERS Safety Report 15659304 (Version 1)
Quarter: 2018Q4

REPORT INFORMATION
  Report Type: Spontaneous
  Country: US (occurrence: US)
  Receive Date: 20181127
  Receipt Date: 20181127
  Transmission Date: 20190205
  Serious: Yes (Hospitalization, Other)
  Sender: FDA-Public Use
  Company Number: US-TEVA-2018-US-979399

PATIENT
  Sex: Female
  Weight: 73 kg

DRUGS (5)
  1. CABERGOLINE. [Interacting]
     Active Substance: CABERGOLINE
  2. SYNTHROID [Concomitant]
     Active Substance: LEVOTHYROXINE SODIUM
  3. AJOVY [Suspect]
     Active Substance: FREMANEZUMAB-VFRM
     Indication: MIGRAINE
     Route: 058
     Dates: start: 20181002
  4. RELPAX [Concomitant]
     Active Substance: ELETRIPTAN HYDROBROMIDE
  5. BELVIQ [Interacting]
     Active Substance: LORCASERIN HYDROCHLORIDE

REACTIONS (16)
  - Haemorrhage [Unknown]
  - Flushing [Unknown]
  - Uterine haemorrhage [Not Recovered/Not Resolved]
  - Thyrotoxic crisis [Unknown]
  - Migraine [Recovered/Resolved]
  - Nausea [Unknown]
  - Hypothalamo-pituitary disorder [Unknown]
  - Photophobia [Unknown]
  - Thyroid disorder [Unknown]
  - Blood pressure increased [Unknown]
  - Drug effect incomplete [Unknown]
  - Hyperacusis [Unknown]
  - Product use complaint [Unknown]
  - Product physical issue [Unknown]
  - Thrombocytopenia [Unknown]
  - Derealisation [Unknown]

NARRATIVE: CASE EVENT DATE: 20181006
